FAERS Safety Report 7247045-4 (Version None)
Quarter: 2011Q1

REPORT INFORMATION
  Report Type: 
  Country: None (occurrence: None)
  Receive Date: 20110127
  Receipt Date: 20110120
  Transmission Date: 20110831
  Serious: Yes (Other)
  Sender: FDA-Public Use
  Company Number: BR-ASTRAZENECA-2011SE02293

PATIENT
  Age: 40 Year
  Sex: Female
  Weight: 110 kg

DRUGS (2)
  1. ATACAND HCT [Suspect]
     Indication: HYPERTENSION
     Dosage: 16/12.5 MG DAILY
     Route: 048
     Dates: start: 20030101, end: 20100101
  2. ATACAND HCT [Suspect]
     Dosage: 16/12.5 MG BID
     Route: 048
     Dates: start: 20100101, end: 20101201

REACTIONS (4)
  - HYPOAESTHESIA [None]
  - DIABETES MELLITUS [None]
  - FATIGUE [None]
  - BLOOD PRESSURE INADEQUATELY CONTROLLED [None]
